FAERS Safety Report 12553303 (Version 2)
Quarter: 2016Q3

REPORT INFORMATION
  Report Type: Spontaneous
  Country: US (occurrence: US)
  Receive Date: 20160713
  Receipt Date: 20160803
  Transmission Date: 20161109
  Serious: No
  Sender: FDA-Public Use
  Company Number: US-PFIZER INC-2016335903

PATIENT
  Age: 55 Year
  Sex: Female
  Weight: 63.5 kg

DRUGS (7)
  1. THYROID [Concomitant]
     Active Substance: LEVOTHYROXINE\LIOTHYRONINE
     Indication: THYROID DISORDER
     Dosage: 95MG, TWO A DAY
  2. PROGESTERONE. [Concomitant]
     Active Substance: PROGESTERONE
     Indication: HORMONE REPLACEMENT THERAPY
     Dosage: 100MG TAKE TWO A DAY
  3. TESTOSTERONE. [Concomitant]
     Active Substance: TESTOSTERONE
     Indication: HORMONE REPLACEMENT THERAPY
     Dosage: 1.5 ML, DAILY (4MG/ML, APPLY 1.5ML A DAY )
  4. THYROID [Concomitant]
     Active Substance: LEVOTHYROXINE\LIOTHYRONINE
     Indication: HORMONE REPLACEMENT THERAPY
  5. LYRICA [Suspect]
     Active Substance: PREGABALIN
     Indication: NEURALGIA
     Dosage: 75MG, CAPSULES, BY MOUTH, THREE TIMES A DAY
     Route: 048
  6. LYRICA [Suspect]
     Active Substance: PREGABALIN
     Indication: FIBROMYALGIA
  7. BI-EST [Concomitant]
     Indication: HORMONE REPLACEMENT THERAPY
     Dosage: 1.5 ML, DAILY (6MG/ML 60:40, 1.5ML A DAY)

REACTIONS (5)
  - Insomnia [Not Recovered/Not Resolved]
  - Anxiety [Unknown]
  - Paraesthesia [Unknown]
  - Pruritus [Not Recovered/Not Resolved]
  - Irritability [Recovering/Resolving]

NARRATIVE: CASE EVENT DATE: 20160706
